FAERS Safety Report 7790409-0 (Version None)
Quarter: 2011Q3

REPORT INFORMATION
  Report Type: 
  Country: None (occurrence: None)
  Receive Date: 20110930
  Receipt Date: 20110919
  Transmission Date: 20111222
  Serious: Yes (Other)
  Sender: FDA-Public Use
  Company Number: CA-JNJFOC-20110604379

PATIENT
  Sex: Male
  Weight: 73 kg

DRUGS (14)
  1. PREDNISONE [Concomitant]
  2. VISINE EYE DROPS [Concomitant]
  3. OXAZEPAM [Concomitant]
  4. VITAMIN B-12 [Concomitant]
     Dosage: 1200
  5. LOPERAMIDE HCL [Concomitant]
     Dosage: 2 TO 2.5 MG DAILY
  6. REMICADE [Suspect]
     Indication: CROHN'S DISEASE
     Route: 042
     Dates: start: 20091201, end: 20110802
  7. RANITIDINE [Concomitant]
  8. AZATHIOPRINE [Concomitant]
  9. HYDRA-ZIDE [Concomitant]
  10. PRAMIPEXOLE DIHYDROCHLORIDE [Concomitant]
  11. ADVAIR DISKUS 100/50 [Concomitant]
     Dosage: 2 PUFFS TWICE DAILY
  12. TYLENOL 3 WITH CODEINE [Concomitant]
     Route: 048
  13. TRIAZOLAM [Concomitant]
  14. LORAZEPAM [Concomitant]

REACTIONS (4)
  - PNEUMONIA [None]
  - GASTRIC INFECTION [None]
  - WEIGHT DECREASED [None]
  - GASTRIC NEOPLASM [None]
